FAERS Safety Report 19007766 (Version 4)
Quarter: 2021Q3

REPORT INFORMATION
  Report Type: Report from Study
  Country: BR (occurrence: BR)
  Receive Date: 20210315
  Receipt Date: 20210725
  Transmission Date: 20211014
  Serious: Yes (Life-Threatening, Other)
  Sender: FDA-Public Use
  Company Number: NVSC2021BR055830

PATIENT
  Age: 38 Year
  Sex: Male

DRUGS (5)
  1. COSENTYX [Suspect]
     Active Substance: SECUKINUMAB
     Dosage: 150 MG, QMO
     Route: 058
     Dates: start: 202102
  2. COSENTYX [Suspect]
     Active Substance: SECUKINUMAB
     Indication: ANKYLOSING SPONDYLITIS
     Dosage: 150 MG, QMO
     Route: 058
     Dates: start: 201812, end: 202010
  3. GOLIMUMAB [Suspect]
     Active Substance: GOLIMUMAB
     Indication: ANKYLOSING SPONDYLITIS
     Dosage: 1 DF, QMO (1 APPLICATION)
     Route: 058
     Dates: start: 202011, end: 20210123
  4. COSENTYX [Suspect]
     Active Substance: SECUKINUMAB
     Dosage: 150 MG, QMO
     Route: 058
     Dates: start: 202105
  5. COSENTYX [Suspect]
     Active Substance: SECUKINUMAB
     Dosage: UNK
     Route: 065
     Dates: start: 20181221, end: 20201118

REACTIONS (8)
  - Pyrexia [Recovering/Resolving]
  - Depressed mood [Recovering/Resolving]
  - General physical health deterioration [Recovering/Resolving]
  - Ankylosing spondylitis [Recovering/Resolving]
  - Arthralgia [Unknown]
  - Inflammation [Recovering/Resolving]
  - Product availability issue [Unknown]
  - Oedema [Unknown]

NARRATIVE: CASE EVENT DATE: 202101
